FAERS Safety Report 16276871 (Version 1)
Quarter: 2019Q2

REPORT INFORMATION
  Report Type: Spontaneous
  Country: US (occurrence: US)
  Receive Date: 20190506
  Receipt Date: 20190506
  Transmission Date: 20190711
  Serious: No
  Sender: FDA-Public Use
  Company Number: US-PFIZER INC-2019186371

PATIENT
  Age: 54 Year
  Sex: Female
  Weight: 82.1 kg

DRUGS (2)
  1. EFFEXOR XR [Suspect]
     Active Substance: VENLAFAXINE HYDROCHLORIDE
     Dosage: 112.5 MG, UNK (DOCTOR UPPED HER DOSE TO AN ADDITIONAL 37.5 MG)
  2. EFFEXOR XR [Suspect]
     Active Substance: VENLAFAXINE HYDROCHLORIDE
     Dosage: 75 MG, UNK

REACTIONS (11)
  - Crying [Unknown]
  - Irritability [Unknown]
  - Feeling abnormal [Unknown]
  - Tension [Unknown]
  - Depressed mood [Unknown]
  - Chest discomfort [Unknown]
  - Fatigue [Unknown]
  - Tremor [Unknown]
  - Anger [Unknown]
  - Anxiety [Unknown]
  - Energy increased [Unknown]
